FAERS Safety Report 4414656-0 (Version None)
Quarter: 2004Q3

REPORT INFORMATION
  Report Type: 
  Country: None (occurrence: None)
  Receive Date: 20040729
  Receipt Date: 20040719
  Transmission Date: 20050211
  Serious: Yes (Other)
  Sender: FDA-Public Use
  Company Number: 201036

PATIENT
  Age: 15 Year
  Sex: Male
  Weight: 50.9 kg

DRUGS (2)
  1. NUTROPIN DEPOT [Suspect]
     Indication: GROWTH HORMONE DEFICIENCY
     Dates: start: 20000215
  2. SYNTHROID [Concomitant]

REACTIONS (1)
  - CONVULSION [None]
